FAERS Safety Report 7046848-9 (Version None)
Quarter: 2010Q4

REPORT INFORMATION
  Report Type: 
  Country: None (occurrence: None)
  Receive Date: 20101015
  Receipt Date: 20101006
  Transmission Date: 20110411
  Serious: Yes (Hospitalization)
  Sender: FDA-Public Use
  Company Number: CA-JNJFOC-20100406172

PATIENT
  Sex: Male
  Weight: 82 kg

DRUGS (2)
  1. REMICADE [Suspect]
     Indication: HIDRADENITIS
     Route: 042
  2. REMICADE [Suspect]
     Indication: CROHN'S DISEASE
     Route: 042

REACTIONS (4)
  - CROHN'S DISEASE [None]
  - FISTULA [None]
  - FISTULA DISCHARGE [None]
  - HIDRADENITIS [None]
